FAERS Safety Report 7570583-1 (Version None)
Quarter: 2011Q2

REPORT INFORMATION
  Report Type: 
  Country: None (occurrence: None)
  Receive Date: 20110624
  Receipt Date: 20110614
  Transmission Date: 20111010
  Serious: Yes (Hospitalization, Other)
  Sender: FDA-Public Use
  Company Number: US-AMGEN-USASP2011030639

PATIENT
  Sex: Male

DRUGS (1)
  1. ENBREL [Suspect]
     Indication: PSORIATIC ARTHROPATHY
     Dosage: 50 MG, 2 TIMES/WK
     Dates: start: 20071109

REACTIONS (5)
  - WALKING AID USER [None]
  - LIMB CRUSHING INJURY [None]
  - ACCIDENT [None]
  - CARPAL TUNNEL SYNDROME [None]
  - COMPLEX REGIONAL PAIN SYNDROME [None]
